FAERS Safety Report 19065612 (Version 2)
Quarter: 2021Q2

REPORT INFORMATION
  Report Type: Spontaneous
  Country: GB (occurrence: GB)
  Receive Date: 20210327
  Receipt Date: 20210605
  Transmission Date: 20210717
  Serious: Yes (Other)
  Sender: FDA-Public Use
  Company Number: NVSC2021GB064374

PATIENT
  Age: 74 Year
  Sex: Female

DRUGS (2)
  1. METHOTREXATE. [Suspect]
     Active Substance: METHOTREXATE
     Indication: PRODUCT USED FOR UNKNOWN INDICATION
     Dosage: 7.5 MG
     Route: 065
  2. METHOTREXATE. [Suspect]
     Active Substance: METHOTREXATE
     Dosage: UNKNOWN
     Route: 065

REACTIONS (10)
  - Liver disorder [Unknown]
  - Neutropenia [Unknown]
  - Peripheral swelling [Unknown]
  - Hand deformity [Unknown]
  - Back pain [Unknown]
  - Rheumatic disorder [Unknown]
  - Mobility decreased [Unknown]
  - Spinal fracture [Unknown]
  - Pain in extremity [Unknown]
  - Psoriatic arthropathy [Unknown]
